FAERS Safety Report 6120640-1 (Version None)
Quarter: 2009Q1

REPORT INFORMATION
  Report Type: 
  Country: None (occurrence: None)
  Receive Date: 20090317
  Receipt Date: 20090311
  Transmission Date: 20090719
  Serious: Yes (Disabling)
  Sender: FDA-Public Use
  Company Number: GB-ASTRAZENECA-2009GB00676

PATIENT
  Age: 68 Year
  Sex: Male

DRUGS (6)
  1. ROSUVASTATIN [Suspect]
     Route: 048
     Dates: start: 20081216, end: 20090201
  2. ASPIRIN [Concomitant]
  3. BUMETANIDE [Concomitant]
     Route: 048
  4. IRBESARTAN [Concomitant]
     Route: 048
  5. NOVOLOG MIX 70/30 [Concomitant]
  6. ACETAMINOPHEN [Concomitant]

REACTIONS (4)
  - DYSPNOEA [None]
  - FEELING ABNORMAL [None]
  - MOBILITY DECREASED [None]
  - PAIN IN EXTREMITY [None]
